FAERS Safety Report 26179516 (Version 1)
Quarter: 2025Q4

REPORT INFORMATION
  Report Type: Spontaneous
  Country: US (occurrence: US)
  Receive Date: 20251219
  Receipt Date: 20251219
  Transmission Date: 20260117
  Serious: Yes (Hospitalization)
  Sender: MYLAN
  Company Number: US-MYLANLABS-2025M1107657

PATIENT
  Age: 67 Year
  Sex: Male

DRUGS (1)
  1. DIAZEPAM [Suspect]
     Active Substance: DIAZEPAM
     Indication: Alcohol withdrawal syndrome
     Dosage: UNK, TOTAL DOSE OF 660MG

REACTIONS (2)
  - Depressed level of consciousness [Recovered/Resolved]
  - Obstructive airways disorder [Unknown]
